FAERS Safety Report 8814182 (Version 1)
Quarter: 2012Q4

REPORT INFORMATION
  Report Type: 
  Country: CH (occurrence: CH)
  Receive Date: 20120928
  Receipt Date: 20120928
  Transmission Date: 20130627
  Serious: Yes (Hospitalization)
  Sender: FDA-Public Use
  Company Number: CH-JNJFOC-20120909394

PATIENT
  Age: 46 Year
  Sex: Male

DRUGS (4)
  1. REMICADE [Suspect]
     Indication: SARCOIDOSIS
     Route: 042
     Dates: start: 20120524, end: 20120607
  2. PREDNISONE [Suspect]
     Indication: SARCOIDOSIS
     Route: 048
  3. IMUREK [Suspect]
     Indication: SARCOIDOSIS
     Route: 048
  4. BACTRIM [Concomitant]
     Indication: PROPHYLAXIS
     Route: 048

REACTIONS (1)
  - Disseminated tuberculosis [Unknown]
